FAERS Safety Report 7236427-2 (Version None)
Quarter: 2011Q1

REPORT INFORMATION
  Report Type: 
  Country: None (occurrence: None)
  Receive Date: 20110120
  Receipt Date: 20110111
  Transmission Date: 20110831
  Serious: Yes (Hospitalization, Other)
  Sender: FDA-Public Use
  Company Number: PHHO2010DE19279

PATIENT
  Sex: Female
  Weight: 71 kg

DRUGS (23)
  1. CERTICAN [Suspect]
     Indication: HEART TRANSPLANT
     Dosage: UNK
     Route: 048
     Dates: start: 20090711, end: 20100903
  2. CERTICAN [Suspect]
     Dosage: 0.75MG AND 1.0MG PER DAY
     Route: 048
     Dates: start: 20100903, end: 20101220
  3. PREDNISOLONE [Concomitant]
     Dosage: 7.5-0-0 MG
     Dates: start: 20100428
  4. PREDNISOLONE [Concomitant]
     Dosage: 0 MG, UNK
     Dates: start: 20101215
  5. SANDIMMUNE [Suspect]
     Dosage: 75-0-50MG
     Route: 048
     Dates: start: 20100428
  6. SANDIMMUNE [Suspect]
     Dosage: 50-0-25MG
  7. TORSEMIDE [Concomitant]
  8. SANDIMMUNE [Suspect]
     Indication: HEART TRANSPLANT
     Dosage: 250 MG, BID
     Route: 048
     Dates: start: 20090710
  9. ACTONEL [Concomitant]
  10. VEROSPIRON [Concomitant]
  11. SANDIMMUNE [Suspect]
     Dosage: 50 MG, BID
     Dates: start: 20101215
  12. SIMVASTATIN [Concomitant]
  13. PREDNISOLONE [Concomitant]
     Dosage: 10 MG IN MORNING
     Dates: start: 20100903
  14. ACETYLSALICYLIC ACID [Concomitant]
  15. SANDIMMUNE [Suspect]
     Dosage: 50 MG, BID
     Dates: start: 20100903
  16. MAGNESIUM [Concomitant]
  17. IDEOS [Concomitant]
  18. VOTUM [Concomitant]
  19. SANDIMMUNE [Suspect]
     Dosage: 50 MG, BID
     Dates: start: 20100706
  20. PREDNISOLONE [Concomitant]
     Indication: HEART TRANSPLANT
     Dosage: 40-20-10 MG
     Route: 048
     Dates: start: 20090712
  21. PREDNISOLONE [Concomitant]
     Dosage: 0 MG, UNK
     Dates: start: 20100706
  22. PANTOPRAZOLE [Concomitant]
  23. KALIUM RETARD [Concomitant]

REACTIONS (5)
  - DIABETES MELLITUS [None]
  - CONCOMITANT DISEASE PROGRESSION [None]
  - RENAL FAILURE [None]
  - ANAEMIA [None]
  - TRICUSPID VALVE INCOMPETENCE [None]
